FAERS Safety Report 20151989 (Version 4)
Quarter: 2022Q1

REPORT INFORMATION
  Report Type: Spontaneous
  Country: US (occurrence: US)
  Receive Date: 20211206
  Receipt Date: 20220119
  Transmission Date: 20220423
  Serious: Yes (Hospitalization, Other)
  Sender: FDA-Public Use
  Company Number: US-ORGANON-O2112USA000391

PATIENT
  Sex: Female
  Weight: 85.624 kg

DRUGS (4)
  1. NEXPLANON [Suspect]
     Active Substance: ETONOGESTREL
     Indication: Contraception
     Dosage: 1 IMPLANT OF 68 MILLIGRAMS, ONCE
     Route: 023
     Dates: start: 20210922, end: 20220111
  2. ADDERALL [Concomitant]
     Active Substance: AMPHETAMINE ASPARTATE\AMPHETAMINE SULFATE\DEXTROAMPHETAMINE SACCHARATE\DEXTROAMPHETAMINE SULFATE
     Dosage: TAKE 1 CAPSULE BY ORAL ROUTE EVERY DAY IN THE MORNING UPON AWAKENING
     Route: 048
     Dates: end: 20220111
  3. FLUOXETINE [Concomitant]
     Active Substance: FLUOXETINE HYDROCHLORIDE
     Dosage: TAKE 1 CAPSULE BY ORAL ROUTE EVERY DAY
     Route: 048
     Dates: end: 20220111
  4. FLUOXETINE [Concomitant]
     Active Substance: FLUOXETINE HYDROCHLORIDE
     Dosage: TAKE 1 CAPSULE BY ORAL ROUTE EVERY DAY IN THE MORNING
     Route: 048

REACTIONS (5)
  - Tubo-ovarian abscess [Recovered/Resolved]
  - Menstruation irregular [Unknown]
  - Weight decreased [Unknown]
  - Abdominal pain [Unknown]
  - Headache [Unknown]

NARRATIVE: CASE EVENT DATE: 20210101
